FAERS Safety Report 8959086 (Version 1)
Quarter: 2012Q4

REPORT INFORMATION
  Report Type: 
  Country: JP (occurrence: JP)
  Receive Date: 20121212
  Receipt Date: 20121212
  Transmission Date: 20130627
  Serious: Yes (Hospitalization)
  Sender: FDA-Public Use
  Company Number: JP-009507513-1212JPN002178

PATIENT
  Age: 62 Year
  Sex: Male
  Weight: 67 kg

DRUGS (17)
  1. PEGINTRON [Suspect]
     Indication: CHRONIC HEPATITIS C
     Dosage: 1.5 Microgram per kilogram, qw
     Route: 058
     Dates: start: 20120809, end: 20121018
  2. REBETOL [Suspect]
     Indication: CHRONIC HEPATITIS C
     Dosage: 800 mg, qd
     Route: 048
     Dates: start: 20120809, end: 20121021
  3. TELAVIC [Suspect]
     Indication: CHRONIC HEPATITIS C
     Dosage: 2250 mg, qd
     Route: 048
     Dates: start: 20120809, end: 20120809
  4. TELAVIC [Suspect]
     Dosage: 1500 mg, qd
     Route: 048
     Dates: start: 20120810, end: 20121021
  5. GLACTIV [Concomitant]
     Indication: DIABETES MELLITUS
     Dosage: 50 mg, qd
     Route: 048
  6. AMLODIPINE BESYLATE [Concomitant]
     Indication: HYPERTENSION
     Dosage: 5 mg, qd
     Route: 048
  7. REVOLADE [Concomitant]
     Indication: IDIOPATHIC THROMBOCYTOPENIC PURPURA
     Dosage: daily dose unknown
     Route: 048
  8. SEFIROM [Concomitant]
     Indication: PYREXIA
     Dosage: daily dose unknown, bid, IV unspecified
     Dates: start: 20121023, end: 20121025
  9. SODIUM CHLORIDE [Concomitant]
     Indication: PYREXIA
     Dosage: daily dose unknown, bid, IV unspecified
     Dates: start: 20121023, end: 20121025
  10. SODIUM CHLORIDE [Concomitant]
     Dosage: daily dose unknown, bid, IV unspecified
     Dates: start: 20121026, end: 20121102
  11. FINIBAX [Concomitant]
     Indication: PYREXIA
     Dosage: daily dose unknown, bid, IV unspecified
     Dates: start: 20121026, end: 20121102
  12. GLIMICRON [Concomitant]
     Indication: DIABETES MELLITUS
     Dosage: 40 mg, qd
     Route: 048
  13. MEDET [Concomitant]
     Indication: DIABETES MELLITUS
     Dosage: 500 mg, qd
     Route: 048
  14. METGLUCO [Concomitant]
     Indication: DIABETES MELLITUS
     Dosage: 250 mg, qd
     Route: 048
  15. URIEF [Concomitant]
     Indication: BENIGN PROSTATIC HYPERPLASIA
     Dosage: 8 mg, qd
     Route: 048
  16. LAMISIL (TERBINAFINE HYDROCHLORIDE) [Concomitant]
     Indication: TINEA INFECTION
     Dosage: daily dose unknown, prn
     Route: 061
  17. FEBURIC [Concomitant]
     Indication: HYPERURICAEMIA
     Dosage: 10 mg, qd
     Route: 048

REACTIONS (1)
  - Pyrexia [Recovering/Resolving]
